FAERS Safety Report 25772609 (Version 1)
Quarter: 2025Q3

REPORT INFORMATION
  Report Type: Spontaneous
  Country: US (occurrence: US)
  Receive Date: 20250908
  Receipt Date: 20250908
  Transmission Date: 20251021
  Serious: Yes (Other)
  Sender: AUROBINDO
  Company Number: US-AUROBINDO-AUR-APL-2025-045378

PATIENT
  Age: 73 Year
  Sex: Female

DRUGS (9)
  1. BETAMETHASONE DIPROPIONATE [Suspect]
     Active Substance: BETAMETHASONE DIPROPIONATE
     Indication: Palmar-plantar erythrodysaesthesia syndrome
     Route: 065
  2. LIDOCAINE [Suspect]
     Active Substance: LIDOCAINE
     Indication: Palmar-plantar erythrodysaesthesia syndrome
     Route: 065
  3. CLOBETASOL PROPIONATE [Suspect]
     Active Substance: CLOBETASOL PROPIONATE
     Indication: Palmar-plantar erythrodysaesthesia syndrome
     Route: 065
  4. DICLOFENAC [Suspect]
     Active Substance: DICLOFENAC
     Indication: Palmar-plantar erythrodysaesthesia syndrome
     Route: 065
  5. CELECOXIB [Suspect]
     Active Substance: CELECOXIB
     Indication: Palmar-plantar erythrodysaesthesia syndrome
     Route: 065
  6. HALOBETASOL [Suspect]
     Active Substance: HALOBETASOL
     Indication: Palmar-plantar erythrodysaesthesia syndrome
     Route: 065
  7. ZINC SULFATE [Suspect]
     Active Substance: ZINC SULFATE
     Indication: Palmar-plantar erythrodysaesthesia syndrome
     Route: 065
  8. LIDOCAINE [Suspect]
     Active Substance: LIDOCAINE
     Indication: Palmar-plantar erythrodysaesthesia syndrome
     Route: 065
  9. UREA [Suspect]
     Active Substance: UREA
     Indication: Palmar-plantar erythrodysaesthesia syndrome
     Route: 065

REACTIONS (1)
  - Drug ineffective [Unknown]
